FAERS Safety Report 10186300 (Version 1)
Quarter: 2014Q2

REPORT INFORMATION
  Report Type: Spontaneous
  Country: GB (occurrence: GB)
  Receive Date: 20140521
  Receipt Date: 20140521
  Transmission Date: 20141212
  Serious: Yes (Hospitalization)
  Sender: FDA-Public Use
  Company Number: PHFR2014GB003518

PATIENT
  Sex: Male

DRUGS (1)
  1. CLOZARIL [Suspect]
     Dosage: UNK
     Route: 048
     Dates: start: 20001201

REACTIONS (4)
  - Pneumothorax [Unknown]
  - Malaise [Unknown]
  - Lung infection [Unknown]
  - Antipsychotic drug level increased [Unknown]
